FAERS Safety Report 6815485-0 (Version None)
Quarter: 2010Q3

REPORT INFORMATION
  Report Type: 
  Country: None (occurrence: None)
  Receive Date: 20100702
  Receipt Date: 20100618
  Transmission Date: 20110219
  Serious: Yes (Life-Threatening, Hospitalization)
  Sender: FDA-Public Use
  Company Number: PL-SANOFI-AVENTIS-2010SA034643

PATIENT
  Age: 69 Year
  Sex: Male
  Weight: 65 kg

DRUGS (12)
  1. CLOPIDOGREL [Suspect]
     Indication: ACUTE CORONARY SYNDROME
     Route: 048
     Dates: start: 20100224, end: 20100319
  2. ACETYLSALICYLIC ACID [Concomitant]
     Dates: start: 20100220
  3. BISOPROLOL [Concomitant]
     Dates: start: 20100220
  4. ATORVASTATIN [Concomitant]
     Dates: start: 20100221
  5. BUDESONIDE [Concomitant]
     Dates: start: 20100220
  6. SALMETEROL [Concomitant]
     Dates: start: 20100220
  7. RAMIPRIL [Concomitant]
     Dates: start: 20100222
  8. CEFTRIAXONE [Concomitant]
     Dates: start: 20100220, end: 20100301
  9. FUROSEMIDE [Concomitant]
     Dates: start: 20100220
  10. ACETYLCYSTEINE [Concomitant]
     Dates: start: 20100223, end: 20100301
  11. IPRATROPIUM [Concomitant]
     Dates: start: 20100302
  12. PANTOPRAZOLE [Concomitant]
     Dates: start: 20100302

REACTIONS (6)
  - GASTRITIS [None]
  - GASTROINTESTINAL EROSION [None]
  - LEFT VENTRICULAR FAILURE [None]
  - MELAENA [None]
  - PLEURAL EFFUSION [None]
  - UPPER GASTROINTESTINAL HAEMORRHAGE [None]
